FAERS Safety Report 20712458 (Version 1)
Quarter: 2022Q2

REPORT INFORMATION
  Report Type: Report from Study
  Country: CA (occurrence: CA)
  Receive Date: 20220415
  Receipt Date: 20220415
  Transmission Date: 20220721
  Serious: Yes (Other)
  Sender: FDA-Public Use
  Company Number: CA-ABBVIE-22K-028-4229809-00

PATIENT
  Sex: Female

DRUGS (1)
  1. RINVOQ [Suspect]
     Active Substance: UPADACITINIB
     Indication: Rheumatoid arthritis
     Route: 048
     Dates: start: 20211008, end: 202202

REACTIONS (13)
  - Ankle fracture [Unknown]
  - Tibia fracture [Unknown]
  - Pain in extremity [Unknown]
  - Stress [Unknown]
  - Arthralgia [Unknown]
  - Arthrodesis [Unknown]
  - Mobility decreased [Unknown]
  - Arthralgia [Unknown]
  - Swelling [Unknown]
  - COVID-19 [Unknown]
  - Contusion [Unknown]
  - Pain in extremity [Not Recovered/Not Resolved]
  - Therapeutic response shortened [Unknown]

NARRATIVE: CASE EVENT DATE: 20220101
